FAERS Safety Report 5583582-6 (Version None)
Quarter: 2007Q4

REPORT INFORMATION
  Report Type: 
  Country: None (occurrence: None)
  Receive Date: 20071231
  Receipt Date: 20071217
  Transmission Date: 20080405
  Serious: Yes (Other)
  Sender: FDA-Public Use
  Company Number: 2007333767

PATIENT
  Age: 57 Year
  Sex: Female
  Weight: 90.7194 kg

DRUGS (3)
  1. SUDAFED PE QUICK-DISSOLVE STIPS CHERRY MENTHOL (PHENYLEPHRINE) [Suspect]
     Indication: SINUS HEADACHE
     Dosage: ^STRIP^ OCCASIONALLY, ORAL
     Route: 048
     Dates: start: 20071025, end: 20071025
  2. ALKA-SELTZER PLUS COLD (ACETYLSALICYLIC ACID, CHLORPHENAMINE MALEATE, [Concomitant]
  3. ANTIBIOTICS (ANTIBIOTICS) [Concomitant]

REACTIONS (5)
  - DIZZINESS [None]
  - NAUSEA [None]
  - PRESYNCOPE [None]
  - VERTIGO [None]
  - VOMITING [None]
